FAERS Safety Report 18718688 (Version 1)
Quarter: 2021Q1

REPORT INFORMATION
  Report Type: Spontaneous
  Country: US (occurrence: US)
  Receive Date: 20210108
  Receipt Date: 20210108
  Transmission Date: 20210419
  Serious: Yes (Other)
  Sender: FDA-Public Use
  Company Number: US-TOLMAR, INC.-20US024823

PATIENT
  Sex: Female

DRUGS (1)
  1. ELIGARD [Suspect]
     Active Substance: LEUPROLIDE ACETATE
     Indication: AUTOIMMUNE DERMATITIS
     Dosage: UNK UNK, Q 3 MONTH
     Route: 030

REACTIONS (2)
  - Off label use [Unknown]
  - Idiopathic intracranial hypertension [Unknown]
